FAERS Safety Report 6972773-5 (Version None)
Quarter: 2010Q3

REPORT INFORMATION
  Report Type: 
  Country: None (occurrence: None)
  Receive Date: 20100909
  Receipt Date: 20100831
  Transmission Date: 20110219
  Serious: Yes (Death, Hospitalization, Other)
  Sender: FDA-Public Use
  Company Number: US-GENZYME-MOZO-1000337

PATIENT
  Sex: Female
  Weight: 79.9 kg

DRUGS (55)
  1. MOZOBIL [Suspect]
     Indication: HAEMATOPOIETIC STEM CELL MOBILISATION
     Dosage: 16584 MCG, QD
     Dates: start: 20100414, end: 20100417
  2. MOZOBIL [Suspect]
     Indication: ACUTE MYELOID LEUKAEMIA
  3. THYMOGLOBULIN [Concomitant]
     Indication: BONE MARROW CONDITIONING REGIMEN
     Dosage: 35 MG, ONCE
     Route: 042
     Dates: start: 20100418, end: 20100418
  4. THYMOGLOBULIN [Concomitant]
     Dosage: 104 MG, ONCE
     Route: 042
     Dates: start: 20100419, end: 20100419
  5. THYMOGLOBULIN [Concomitant]
     Dosage: 138 MG, ONCE
     Route: 042
     Dates: start: 20100420, end: 20100420
  6. NEUPOGEN [Concomitant]
     Indication: HAEMATOPOIETIC STEM CELL MOBILISATION
     Dosage: 600 MCG, QD
     Dates: start: 20100412, end: 20100417
  7. FLUDARABINE [Concomitant]
     Indication: PRODUCT USED FOR UNKNOWN INDICATION
     Dosage: 72 MG, QD
     Dates: start: 20100415, end: 20100418
  8. BUSULFAN [Concomitant]
     Indication: PRODUCT USED FOR UNKNOWN INDICATION
     Dosage: 234 MG, QD
     Dates: start: 20100415, end: 20100418
  9. ACETAMINOPHEN [Concomitant]
     Indication: PRODUCT USED FOR UNKNOWN INDICATION
     Dosage: 325 MG, PRN
  10. ALBUMIN (HUMAN) [Concomitant]
     Indication: PRODUCT USED FOR UNKNOWN INDICATION
     Dosage: 25 G, UNK
  11. ATENOLOL [Concomitant]
     Indication: HYPERTENSION
     Dosage: 25 MG, BID
     Route: 048
  12. ATOVAQUONE [Concomitant]
     Indication: PRODUCT USED FOR UNKNOWN INDICATION
     Dosage: 1500 MG, QD
  13. BENZONATATE [Concomitant]
     Indication: PRODUCT USED FOR UNKNOWN INDICATION
     Dosage: 100 MG, PRN
     Route: 048
  14. CASPOFUNGIN ACETATE [Concomitant]
     Indication: PRODUCT USED FOR UNKNOWN INDICATION
     Dosage: 35 MG, QD
     Route: 042
  15. CITALOPRAM HYDROBROMIDE [Concomitant]
     Indication: AFFECTIVE DISORDER
     Dosage: 20 MG, UNK
     Route: 048
  16. CLONAZEPAM [Concomitant]
     Indication: ANXIETY
     Dosage: 0.25 MG, QD
     Route: 048
  17. CLONAZEPAM [Concomitant]
     Dosage: 1 MG, QD
     Route: 048
  18. CYCLOBENZAPRINE [Concomitant]
     Indication: PRODUCT USED FOR UNKNOWN INDICATION
     Dosage: 12.5 MG, PRN
     Route: 048
  19. DIPHENHYDRAMINE HCL [Concomitant]
     Indication: PRODUCT USED FOR UNKNOWN INDICATION
     Dosage: 12.5 MG, PRN
     Route: 042
  20. FUROSEMIDE [Concomitant]
     Indication: PRODUCT USED FOR UNKNOWN INDICATION
     Dosage: 100 MG, UNK
     Route: 042
  21. GABAPENTIN [Concomitant]
     Indication: PRODUCT USED FOR UNKNOWN INDICATION
     Dosage: 300 MG, UNK
     Route: 048
  22. GUAIFENESIN [Concomitant]
     Indication: PRODUCT USED FOR UNKNOWN INDICATION
     Dosage: 600 MG, PRN
     Route: 048
  23. HYDROCORTISONE [Concomitant]
     Indication: PRODUCT USED FOR UNKNOWN INDICATION
     Route: 061
  24. LEVALBUTEROL HYDROCHLORIDE [Concomitant]
     Indication: PRODUCT USED FOR UNKNOWN INDICATION
     Dosage: 0.63 MG, UNK
     Route: 050
  25. LOPERAMIDE [Concomitant]
     Indication: DIARRHOEA
     Dosage: 2 MG, PRN
     Route: 048
  26. MEROPENEM [Concomitant]
     Indication: PRODUCT USED FOR UNKNOWN INDICATION
     Dosage: 1 G, Q12HR
     Route: 042
  27. MORPHINE [Concomitant]
     Indication: PRODUCT USED FOR UNKNOWN INDICATION
     Dosage: 0.5 MG, Q4HR
     Route: 042
  28. NYSTATIN [Concomitant]
     Indication: PRODUCT USED FOR UNKNOWN INDICATION
     Dosage: 100000 U, Q2HR
     Route: 050
  29. ONDANSETRON HYDROCHLORIDE [Concomitant]
     Indication: NAUSEA
     Dosage: 8 MG, PRN
     Route: 042
  30. ONDANSETRON HYDROCHLORIDE [Concomitant]
     Indication: VOMITING
  31. OXYCODONE HCL [Concomitant]
     Indication: PAIN
     Dosage: 5 MG, PRN
     Route: 048
  32. OXYCODONE HCL [Concomitant]
     Dosage: 5 MG, PRN
     Route: 048
  33. POTASSIUM CHLORIDE [Concomitant]
     Indication: PRODUCT USED FOR UNKNOWN INDICATION
     Dosage: 20 MEQ, UNK
     Route: 042
  34. POTASSIUM CHLORIDE [Concomitant]
     Dosage: 40 MEQ, UNK
     Route: 042
  35. POTASSIUM CHLORIDE [Concomitant]
     Dosage: 60 MEQ, UNK
     Route: 042
  36. SEVELAMER HYDROCHLORIDE [Concomitant]
     Indication: PRODUCT USED FOR UNKNOWN INDICATION
     Dosage: 800 MG, TID
     Route: 048
  37. SODIUM CHLORIDE [Concomitant]
     Indication: PRODUCT USED FOR UNKNOWN INDICATION
     Dosage: 1000 ML, QD
     Route: 042
  38. SODIUM CHLORIDE [Concomitant]
     Dosage: 250 ML, UNK
     Route: 042
  39. SODIUM CHLORIDE [Concomitant]
     Dosage: 10 ML, PRN
     Route: 042
  40. SODIUM CHLORIDE [Concomitant]
     Dosage: 10 ML, UNK
     Route: 042
  41. SODIUM CITRATE AND CITRIC ACID [Concomitant]
     Indication: PRODUCT USED FOR UNKNOWN INDICATION
     Dosage: 20 ML, TID
     Route: 048
  42. SPIRONOLACTONE [Concomitant]
     Indication: PRODUCT USED FOR UNKNOWN INDICATION
     Dosage: 75 MG, BID
     Route: 048
  43. SUCRALFATE [Concomitant]
     Indication: STOMATITIS
     Dosage: 1000 MG, PRN
     Route: 048
  44. SUMATRIPTAN [Concomitant]
     Indication: HEADACHE
     Dosage: 50 MG, QD
     Route: 048
  45. TACROLIMUS [Concomitant]
     Indication: PROPHYLAXIS AGAINST GRAFT VERSUS HOST DISEASE
     Dosage: 0.2 MG, QD
     Route: 042
  46. TACROLIMUS [Concomitant]
     Dosage: 1 MG, Q12HR
     Route: 048
  47. URSODIOL [Concomitant]
     Indication: LIVER DISORDER
     Dosage: 300 MG, TID
     Route: 048
  48. VALACYCLOVIR [Concomitant]
     Indication: INFECTION PROPHYLAXIS
     Dosage: 500 MG, UNK
     Route: 048
  49. XYLOXYLIN [Concomitant]
     Indication: PRODUCT USED FOR UNKNOWN INDICATION
     Dosage: 5 ML, PRN
     Route: 050
  50. XYLOXYLIN [Concomitant]
     Dosage: 5 ML, UNK
  51. HEPARIN [Concomitant]
     Indication: CENTRAL VENOUS CATHETERISATION
     Dosage: 200 U, QD
     Route: 050
  52. NOXAFIL [Concomitant]
     Indication: ANTIFUNGAL TREATMENT
     Dosage: 200 MG, QID
  53. ZYRTEC [Concomitant]
     Indication: HYPERSENSITIVITY
     Dosage: 10 MG, QD
     Route: 048
  54. NEXIUM [Concomitant]
     Indication: GASTRIC PH DECREASED
     Dosage: 40 MG, QD
  55. MAGNESIUM OXIDE [Concomitant]
     Indication: MINERAL SUPPLEMENTATION
     Dosage: 500 MG, BID
     Route: 048

REACTIONS (8)
  - ACUTE MYOCARDIAL INFARCTION [None]
  - FLUID OVERLOAD [None]
  - MUCOSAL INFLAMMATION [None]
  - PNEUMONIA [None]
  - RENAL FAILURE [None]
  - RESPIRATORY FAILURE [None]
  - SEPTIC SHOCK [None]
  - VENOOCCLUSIVE DISEASE [None]
